FAERS Safety Report 9267768 (Version 1)
Quarter: 2013Q2

REPORT INFORMATION
  Report Type: Spontaneous
  Country: US (occurrence: US)
  Receive Date: 20130502
  Receipt Date: 20130502
  Transmission Date: 20140414
  Serious: Yes (Other)
  Sender: FDA-Public Use
  Company Number: PHEH2013US009388

PATIENT
  Sex: Female

DRUGS (8)
  1. DIOVAN [Suspect]
  2. ZETIA [Concomitant]
     Dosage: 10 MG, UNK
  3. THEOPHYLLINE [Concomitant]
  4. LOVASTATIN [Concomitant]
     Dosage: 40 MG, UNK
  5. SINEMET [Concomitant]
     Dosage: 25 MG, UNK
  6. SYNTHROID [Concomitant]
  7. OMEPRAZOLE [Concomitant]
     Dosage: 20 MG, UNK
  8. ELAVIL [Concomitant]

REACTIONS (3)
  - Parkinson^s disease [Unknown]
  - Tremor [Unknown]
  - Hypothyroidism [Unknown]
